FAERS Safety Report 8788873 (Version 1)
Quarter: 2012Q4

REPORT INFORMATION
  Report Type: 
  Country: US (occurrence: US)
  Receive Date: 20120917
  Receipt Date: 20120917
  Transmission Date: 20130627
  Serious: No
  Sender: FDA-Public Use
  Company Number: US-PFIZER INC-2012226432

PATIENT
  Age: 42 Year
  Sex: Female
  Weight: 56.69 kg

DRUGS (2)
  1. DOXYCYCLINE CALCIUM [Suspect]
     Indication: INFECTED BITES
     Dosage: 100 mg, two times a day
     Route: 048
     Dates: start: 20120903, end: 20120909
  2. PREDNISONE [Concomitant]
     Dosage: UNK

REACTIONS (2)
  - Oropharyngeal pain [Not Recovered/Not Resolved]
  - Chest discomfort [Not Recovered/Not Resolved]
